FAERS Safety Report 18043465 (Version 1)
Quarter: 2020Q3

REPORT INFORMATION
  Report Type: Spontaneous
  Country: CA (occurrence: CA)
  Receive Date: 20200720
  Receipt Date: 20200720
  Transmission Date: 20201103
  Serious: Yes (Disabling)
  Sender: FDA-Public Use
  Company Number: CA-ROCHE-2642811

PATIENT
  Age: 94 Year
  Sex: Male

DRUGS (1)
  1. AVASTIN [Suspect]
     Active Substance: BEVACIZUMAB
     Indication: ANTIANGIOGENIC THERAPY
     Dosage: SOLUTION INTRAVENOUS
     Route: 042

REACTIONS (2)
  - Glaucoma surgery [Not Recovered/Not Resolved]
  - Glaucoma [Not Recovered/Not Resolved]
